FAERS Safety Report 8600481-3 (Version None)
Quarter: 2012Q3

REPORT INFORMATION
  Report Type: 
  Country: None (occurrence: None)
  Receive Date: 20120802
  Receipt Date: 20120720
  Transmission Date: 20120928
  Serious: Yes (Other)
  Sender: FDA-Public Use
  Company Number: AUR-APL-2012-02272

PATIENT
  Age: 80 Year
  Sex: Female

DRUGS (5)
  1. HYDROCHLOROTHIAZIDE [Suspect]
     Indication: PRODUCT USED FOR UNKNOWN INDICATION
     Dosage: 12.5 MG (12.5 MG, 1 IN 1 D), UNKNOWN
  2. AMLODIPINE BESYLATE [Suspect]
     Indication: PRODUCT USED FOR UNKNOWN INDICATION
  3. LOSARTAN POTASSIUM [Suspect]
     Indication: PRODUCT USED FOR UNKNOWN INDICATION
     Dosage: 100 MG (100 MG, 1 IN 1 D), UNKNOWN
  4. BARNIDIPINE HYDROCHLORIDE (BARNIDIPINE HYDROCHLORIDE) [Suspect]
     Indication: PRODUCT USED FOR UNKNOWN INDICATION
     Dosage: 10 MG (10 MG, 1 IN 1 D), UNKNOWN
  5. TOLTERODINE TARTRATE [Suspect]
     Indication: PRODUCT USED FOR UNKNOWN INDICATION
     Dosage: 3 MG (1.5 MG, 2 IN 1 D), UNKNOWN

REACTIONS (7)
  - DRY SKIN [None]
  - PRURITUS [None]
  - JOINT SWELLING [None]
  - PAIN IN EXTREMITY [None]
  - DRY EYE [None]
  - ECZEMA [None]
  - CONSTIPATION [None]
